FAERS Safety Report 18074350 (Version 1)
Quarter: 2020Q3

REPORT INFORMATION
  Report Type: Spontaneous
  Country: US (occurrence: US)
  Receive Date: 20200727
  Receipt Date: 20200727
  Transmission Date: 20201103
  Serious: No
  Sender: FDA-Public Use
  Company Number: US-JNJFOC-20200731225

PATIENT
  Age: 38 Year
  Sex: Female
  Weight: 61.29 kg

DRUGS (1)
  1. WOMENS ROGAINE UNSCENTED [Suspect]
     Active Substance: MINOXIDIL
     Indication: ANDROGENETIC ALOPECIA
     Dosage: A HALF A CAP FULL ONCE A DAY, THE PATIENT LAST USED THE PRODUCT ON 21?JUL?2020.
     Route: 061
     Dates: start: 2020

REACTIONS (2)
  - Poor quality product administered [Unknown]
  - Product formulation issue [Unknown]

NARRATIVE: CASE EVENT DATE: 2020
